FAERS Safety Report 9677217 (Version 1)
Quarter: 2013Q4

REPORT INFORMATION
  Report Type: Spontaneous
  Country: US (occurrence: None)
  Receive Date: 20131107
  Receipt Date: 20131107
  Transmission Date: 20140711
  Serious: No
  Sender: FDA-Public Use
  Company Number: None

PATIENT
  Age: 55 Year
  Sex: Female
  Weight: 65.32 kg

DRUGS (7)
  1. FAMOTIDINE [Suspect]
     Indication: DYSPEPSIA
     Route: 048
  2. ASPIRIN [Concomitant]
  3. PLAVIX [Concomitant]
  4. COREG [Concomitant]
  5. IMDUR [Concomitant]
  6. CRESTOR [Concomitant]
  7. RANEXA [Concomitant]

REACTIONS (2)
  - Drug ineffective [None]
  - Product substitution issue [None]
